FAERS Safety Report 9660025 (Version 3)
Quarter: 2014Q1

REPORT INFORMATION
  Report Type: Report from Study
  Country: US (occurrence: US)
  Receive Date: 20131031
  Receipt Date: 20140320
  Transmission Date: 20141002
  Serious: Yes (Hospitalization, Other)
  Sender: FDA-Public Use
  Company Number: US-BAYER-2013-125607

PATIENT
  Age: 60 Year
  Sex: Male
  Weight: 91.16 kg

DRUGS (8)
  1. NEXAVAR [Suspect]
     Indication: HEPATIC CANCER
     Dosage: 400 MG, BID
     Route: 048
     Dates: start: 20130929, end: 20131007
  2. NEXAVAR [Suspect]
     Indication: HEPATIC CANCER
     Dosage: 200 MG, BID
     Route: 048
     Dates: start: 20131010, end: 20131012
  3. NEXAVAR [Suspect]
     Indication: HEPATIC CANCER
     Dosage: UNK
     Route: 048
     Dates: start: 20131024
  4. NEXAVAR [Suspect]
     Indication: HEPATIC CANCER
     Dosage: 200 MG, BID
     Route: 048
     Dates: start: 20131120, end: 20131202
  5. NEXAVAR [Suspect]
     Indication: HEPATIC CANCER
     Dosage: 200 MG, QOD
     Route: 048
     Dates: start: 20131218, end: 20140312
  6. HYDROCODONE [Concomitant]
     Indication: BACK PAIN
     Dosage: 2-4 TIMES A DAY
  7. HYDROCODONE [Concomitant]
     Indication: HEADACHE
  8. LISINOPRIL [Concomitant]
     Indication: HYPERTENSION
     Dosage: 40 MG, QD

REACTIONS (12)
  - Chest pain [Recovered/Resolved]
  - Hypertension [Not Recovered/Not Resolved]
  - Alopecia [Not Recovered/Not Resolved]
  - Hair texture abnormal [Not Recovered/Not Resolved]
  - Aphagia [Recovered/Resolved]
  - Retching [Recovered/Resolved]
  - Vomiting [Recovered/Resolved]
  - Nausea [Recovered/Resolved]
  - Asthenia [Recovering/Resolving]
  - Headache [Recovered/Resolved]
  - Weight decreased [Recovering/Resolving]
  - Drug intolerance [None]
